FAERS Safety Report 23882629 (Version 1)
Quarter: 2024Q2

REPORT INFORMATION
  Report Type: Other
  Country: IT (occurrence: IT)
  Receive Date: 20240522
  Receipt Date: 20240522
  Transmission Date: 20240716
  Serious: Yes (Other)
  Sender: FDA-Public Use
  Company Number: IT-ROCHE-3567801

PATIENT
  Age: 37 Year
  Sex: Female

DRUGS (1)
  1. RITUXIMAB [Suspect]
     Active Substance: RITUXIMAB
     Indication: Endocrine ophthalmopathy
     Dosage: 500 MG, SINGLE
     Route: 042

REACTIONS (2)
  - Lymphocyte count decreased [Unknown]
  - Off label use [Unknown]
